FAERS Safety Report 14687525 (Version 1)
Quarter: 2018Q1

REPORT INFORMATION
  Report Type: Spontaneous
  Country: FR (occurrence: FR)
  Receive Date: 20180328
  Receipt Date: 20180328
  Transmission Date: 20180509
  Serious: Yes (Other)
  Sender: FDA-Public Use
  Company Number: FR-MERCK KGAA-2044659

PATIENT
  Sex: Female

DRUGS (1)
  1. NOVOTHYROX [Suspect]
     Active Substance: LEVOTHYROXINE SODIUM
     Indication: PRODUCT USED FOR UNKNOWN INDICATION

REACTIONS (18)
  - Psychiatric symptom [None]
  - Pain in extremity [None]
  - Hot flush [None]
  - Fatigue [None]
  - Dizziness [None]
  - Loss of personal independence in daily activities [None]
  - Irritability [None]
  - Aphasia [None]
  - Alopecia [None]
  - Headache [None]
  - Tendon pain [None]
  - Memory impairment [None]
  - Impatience [None]
  - Amnesia [None]
  - Suspiciousness [None]
  - Arthralgia [None]
  - Social avoidant behaviour [None]
  - Insomnia [None]
